FAERS Safety Report 11525942 (Version 1)
Quarter: 2015Q3

REPORT INFORMATION
  Report Type: Spontaneous
  Country: US (occurrence: US)
  Receive Date: 20150918
  Receipt Date: 20150918
  Transmission Date: 20151125
  Serious: Yes (Other)
  Sender: FDA-Public Use
  Company Number: US-TAKEDA-TPA2012A03643

PATIENT

DRUGS (7)
  1. ACTOS [Suspect]
     Active Substance: PIOGLITAZONE HYDROCHLORIDE
     Indication: TYPE 2 DIABETES MELLITUS
     Dosage: 20 MG, UNK
     Route: 048
     Dates: start: 20000101, end: 20000601
  2. GLUCOTROL [Concomitant]
     Active Substance: GLIPIZIDE
     Dosage: 5 MG, UNK
     Dates: start: 2000
  3. ACTOS [Suspect]
     Active Substance: PIOGLITAZONE HYDROCHLORIDE
     Dosage: 20 MG, UNK
     Route: 048
     Dates: start: 20080717
  4. LANTUS [Concomitant]
     Active Substance: INSULIN GLARGINE
     Dosage: 1000 ML, UNK, VIAL
     Dates: start: 2003
  5. METFORMIN [Concomitant]
     Active Substance: METFORMIN HYDROCHLORIDE
     Dosage: 850/1000MG, UNK
     Dates: start: 2002
  6. GLUCOPHAGE [Concomitant]
     Active Substance: METFORMIN HYDROCHLORIDE
     Dosage: 500 MG, UNK (2 FILLS)
     Dates: start: 2002
  7. HUMALOG [Concomitant]
     Active Substance: INSULIN LISPRO
     Dosage: 1000 ML, UNK, VIAL
     Dates: start: 2010

REACTIONS (10)
  - Back pain [Unknown]
  - Dysuria [Unknown]
  - Bladder transitional cell carcinoma [Unknown]
  - Blood urine present [Unknown]
  - Weight decreased [Unknown]
  - Micturition urgency [Unknown]
  - Pollakiuria [Unknown]
  - Decreased appetite [Unknown]
  - Gastrointestinal disorder [Unknown]
  - Abdominal pain lower [Unknown]

NARRATIVE: CASE EVENT DATE: 20090911
